FAERS Safety Report 17947982 (Version 1)
Quarter: 2020Q2

REPORT INFORMATION
  Report Type: Report from Study
  Country: US (occurrence: US)
  Receive Date: 20200626
  Receipt Date: 20200626
  Transmission Date: 20200714
  Serious: Yes (Other)
  Sender: FDA-Public Use
  Company Number: US-SUN PHARMACEUTICAL INDUSTRIES LTD-2020R1-251215

PATIENT
  Age: 12 Year
  Sex: Female

DRUGS (4)
  1. PREDNISONE. [Suspect]
     Active Substance: PREDNISONE
     Indication: MORPHOEA
     Dosage: UNK
     Route: 065
  2. CORTICOSTEROIDS [Suspect]
     Active Substance: CORTICOSTEROID NOS
     Indication: MORPHOEA
     Dosage: UNK
     Route: 061
  3. METHOTREXATE. [Suspect]
     Active Substance: METHOTREXATE
     Indication: MORPHOEA
     Dosage: UNK
     Route: 048
  4. VITAMIN D ANALOGUES [UNSPECIFIED] [Suspect]
     Active Substance: UNSPECIFIED INGREDIENT
     Indication: MORPHOEA
     Dosage: UNK
     Route: 061

REACTIONS (1)
  - Therapeutic product effect incomplete [Unknown]
